FAERS Safety Report 16812739 (Version 1)
Quarter: 2019Q3

REPORT INFORMATION
  Report Type: Spontaneous
  Country: US (occurrence: US)
  Receive Date: 20190916
  Receipt Date: 20190916
  Transmission Date: 20191005
  Serious: No
  Sender: FDA-Public Use
  Company Number: US-009507513-1909USA003438

PATIENT
  Sex: Female

DRUGS (3)
  1. MIRTAZAPINE. [Suspect]
     Active Substance: MIRTAZAPINE
     Route: 048
  2. FLUOXETINE [Suspect]
     Active Substance: FLUOXETINE HYDROCHLORIDE
  3. CLONAZEPAM. [Suspect]
     Active Substance: CLONAZEPAM

REACTIONS (2)
  - Somnolence [Not Recovered/Not Resolved]
  - Sedation [Not Recovered/Not Resolved]
